FAERS Safety Report 15956474 (Version 2)
Quarter: 2019Q1

REPORT INFORMATION
  Report Type: Spontaneous
  Country: AR (occurrence: AR)
  Receive Date: 20190213
  Receipt Date: 20190328
  Transmission Date: 20190417
  Serious: Yes (Other)
  Sender: FDA-Public Use
  Company Number: AR-TEVA-2019-AR-1010515

PATIENT
  Age: 50 Year
  Sex: Male

DRUGS (4)
  1. PROMETHAZINE [Suspect]
     Active Substance: PROMETHAZINE\PROMETHAZINE HYDROCHLORIDE
     Indication: SCHIZOPHRENIA
     Dosage: 25 MILLIGRAM DAILY;
     Route: 065
     Dates: start: 2012
  2. RISPERIDONE. [Suspect]
     Active Substance: RISPERIDONE
     Indication: SCHIZOPHRENIA
     Dosage: 2 MILLIGRAM DAILY;
     Route: 065
     Dates: start: 2012
  3. CLONAZEPAM. [Concomitant]
     Active Substance: CLONAZEPAM
     Indication: SCHIZOPHRENIA
     Dosage: .5 MILLIGRAM DAILY;
     Route: 065
     Dates: start: 2012
  4. MAGNESIUM VALPROATE [Concomitant]
     Active Substance: VALPROATE MAGNESIUM
     Indication: SCHIZOPHRENIA
     Dosage: 800 MILLIGRAM DAILY;
     Route: 065
     Dates: start: 2012

REACTIONS (2)
  - Anuria [Recovering/Resolving]
  - Rhabdomyolysis [Recovering/Resolving]
